FAERS Safety Report 10493923 (Version 3)
Quarter: 2015Q2

REPORT INFORMATION
  Report Type: Report from Study
  Country: CH (occurrence: CH)
  Receive Date: 20141003
  Receipt Date: 20150603
  Transmission Date: 20150821
  Serious: Yes (Hospitalization, Other)
  Sender: FDA-Public Use
  Company Number: CH-BIOGENIDEC-2014BI099253

PATIENT
  Age: 61 Year
  Sex: Male

DRUGS (4)
  1. AVONEX [Suspect]
     Active Substance: INTERFERON BETA-1A
     Indication: MULTIPLE SCLEROSIS
     Route: 030
     Dates: start: 201409
  2. ASPIRIN CARDIO [Concomitant]
     Active Substance: ASPIRIN
     Dates: start: 2010
  3. AVONEX [Suspect]
     Active Substance: INTERFERON BETA-1A
     Indication: MULTIPLE SCLEROSIS
     Route: 030
     Dates: start: 20120327, end: 201408
  4. AVONEX [Suspect]
     Active Substance: INTERFERON BETA-1A
     Indication: MULTIPLE SCLEROSIS
     Route: 030
     Dates: start: 20050121, end: 201203

REACTIONS (4)
  - Multiple sclerosis [Not Recovered/Not Resolved]
  - Myocardial infarction [Recovered/Resolved]
  - Coronary artery stenosis [Recovered/Resolved]
  - Catheter site haematoma [Unknown]

NARRATIVE: CASE EVENT DATE: 20050121
